FAERS Safety Report 19870526 (Version 1)
Quarter: 2021Q3

REPORT INFORMATION
  Report Type: Spontaneous
  Country: DE (occurrence: DE)
  Receive Date: 20210922
  Receipt Date: 20210922
  Transmission Date: 20211014
  Serious: Yes (Other)
  Sender: FDA-Public Use
  Company Number: NVSC2021DE208417

PATIENT
  Age: 1 Day
  Sex: Female
  Weight: 2.4 kg

DRUGS (4)
  1. METOPROLOLSUCCINAT ^1A FARMA^ [Suspect]
     Active Substance: METOPROLOL SUCCINATE
     Indication: FOETAL EXPOSURE DURING PREGNANCY
     Dosage: 95 MG, QD [95 MG/D ]
     Route: 064
     Dates: start: 20200111, end: 20201021
  2. BUPRENORPHINE. [Suspect]
     Active Substance: BUPRENORPHINE
     Indication: FOETAL EXPOSURE DURING PREGNANCY
     Dosage: 8 MG, QD [8 MG/D ]
     Route: 064
     Dates: start: 20200111, end: 20201021
  3. ESCITALOPRAM [Suspect]
     Active Substance: ESCITALOPRAM OXALATE
     Indication: FOETAL EXPOSURE DURING PREGNANCY
     Dosage: 10 MG, QD [10 MG/D ]
     Route: 064
     Dates: start: 20200111, end: 20201021
  4. IBUPROFEN. [Concomitant]
     Active Substance: IBUPROFEN
     Indication: FOETAL EXPOSURE DURING PREGNANCY
     Dosage: 400 MG [400 MG/D (BEI BEDARF)] (STRENGTH 400)
     Route: 064

REACTIONS (4)
  - Sepsis neonatal [Recovered/Resolved]
  - Small for dates baby [Unknown]
  - Foetal exposure during pregnancy [Unknown]
  - Drug withdrawal syndrome neonatal [Recovered/Resolved]

NARRATIVE: CASE EVENT DATE: 20201021
